FAERS Safety Report 6461932-6 (Version None)
Quarter: 2009Q4

REPORT INFORMATION
  Report Type: 
  Country: None (occurrence: None)
  Receive Date: 20091130
  Receipt Date: 20091125
  Transmission Date: 20100525
  Serious: Yes (Other)
  Sender: FDA-Public Use
  Company Number: DE-SANOFI-AVENTIS-A01200910718

PATIENT
  Sex: Male

DRUGS (1)
  1. CLOPIDOGREL BISULFATE [Suspect]
     Dosage: UNIT DOSE: 75 MG
     Route: 048
     Dates: start: 20090508, end: 20091109

REACTIONS (4)
  - GASTRIC DISORDER [None]
  - INTRACARDIAC THROMBUS [None]
  - NAUSEA [None]
  - WEIGHT DECREASED [None]
